FAERS Safety Report 26170927 (Version 1)
Quarter: 2025Q4

REPORT INFORMATION
  Report Type: Spontaneous
  Country: US (occurrence: None)
  Receive Date: 20251217
  Receipt Date: 20251217
  Transmission Date: 20260118
  Serious: Yes (Death)
  Sender: FDA-CTU
  Company Number: None

PATIENT
  Age: 71 Year
  Sex: Male
  Weight: 121.05 kg

DRUGS (20)
  1. SOTALOL HYDROCHLORIDE [Suspect]
     Active Substance: SOTALOL HYDROCHLORIDE
     Indication: Heart rate irregular
     Dosage: OTHER QUANTITY : 60 CAPSULE(S);?FREQUENCY : TWICE A DAY;
     Route: 048
     Dates: start: 20251027, end: 20251114
  2. Pacemaker Oxygen 4 units [Concomitant]
  3. Allopurinol 300mg once a day [Concomitant]
  4. Amlodipine 10mg once a day [Concomitant]
  5. Atorvastatin 80 mg at bedtime [Concomitant]
  6. Glimepiride 1 mg with breakfast [Concomitant]
  7. Hydrochloride 25 mg once a day [Concomitant]
  8. Lorbrena 100 mg timed one a day [Concomitant]
  9. Losartan 100 mg once a day [Concomitant]
  10. Methocarbamol 750 mg 1 every 8 hours as need [Concomitant]
  11. Metolazone 2.5 mg 1 a day as needed [Concomitant]
  12. Omeprazole 20 mg 1 every morning [Concomitant]
  13. Ondansetron 8 mg tabs every 8 hours [Concomitant]
  14. Potassium chloride ER 10 mg twice a day [Concomitant]
  15. Xarelto 20 mg once a day [Concomitant]
  16. Trulicity 3 mg once a week [Concomitant]
  17. VITAMIN C [Concomitant]
     Active Substance: ASCORBIC ACID
  18. BIOTIN [Concomitant]
     Active Substance: BIOTIN
  19. CETIRIZINE [Concomitant]
     Active Substance: CETIRIZINE HYDROCHLORIDE
  20. Glucosamine chondr 750 mg/600 [Concomitant]

REACTIONS (8)
  - Blister [None]
  - Diplopia [None]
  - Blindness transient [None]
  - Lethargy [None]
  - Fall [None]
  - Breath sounds absent [None]
  - Pain in extremity [None]
  - Cardiac arrest [None]

NARRATIVE: CASE EVENT DATE: 20251028
